FAERS Safety Report 7178473-3 (Version None)
Quarter: 2010Q4

REPORT INFORMATION
  Report Type: 
  Country: None (occurrence: None)
  Receive Date: 20101220
  Receipt Date: 20101210
  Transmission Date: 20110411
  Serious: Yes (Hospitalization, Disabling)
  Sender: FDA-Public Use
  Company Number: US-MERCK-1012USA02294

PATIENT
  Age: 72 Year
  Sex: Female

DRUGS (1)
  1. FOSAMAX [Suspect]
     Indication: OSTEOPOROSIS
     Route: 048
     Dates: start: 20010101, end: 20090219

REACTIONS (9)
  - ADVERSE EVENT [None]
  - BONE DENSITY DECREASED [None]
  - DEVICE FAILURE [None]
  - FALL [None]
  - FEMUR FRACTURE [None]
  - FRACTURE NONUNION [None]
  - IMPAIRED HEALING [None]
  - STRESS FRACTURE [None]
  - WEIGHT DECREASED [None]
